FAERS Safety Report 4376223-7 (Version None)
Quarter: 2004Q2

REPORT INFORMATION
  Report Type: 
  Country: None (occurrence: None)
  Receive Date: 20040607
  Receipt Date: 20040422
  Transmission Date: 20050107
  Serious: Yes (Other)
  Sender: FDA-Public Use
  Company Number: US-SHR-04-023420

PATIENT
  Age: 65 Year
  Sex: Female
  Weight: 116.1 kg

DRUGS (15)
  1. CAMPATH [Suspect]
     Indication: PROLYMPHOCYTIC LEUKAEMIA
     Dosage: 3/10/30MG, TOTAL 9WKS, INTRAVENOUS;3/10/30MG, TOTAL 9 WEEKS, INTRAVENOUS
     Route: 042
     Dates: start: 20030121, end: 20030401
  2. CAMPATH [Suspect]
     Indication: PROLYMPHOCYTIC LEUKAEMIA
     Dosage: 3/10/30MG, TOTAL 9WKS, INTRAVENOUS;3/10/30MG, TOTAL 9 WEEKS, INTRAVENOUS
     Route: 042
     Dates: start: 20030528, end: 20030801
  3. CAMPATH [Suspect]
     Indication: PROLYMPHOCYTIC LEUKAEMIA
     Dosage: 3/10/30MG, TOTAL 9WKS, INTRAVENOUS;3/10/30MG, TOTAL 9 WEEKS, INTRAVENOUS
     Route: 042
     Dates: start: 20031029, end: 20040102
  4. ... [Suspect]
  5. RITUXAN [Concomitant]
  6. CYTOXAN [Concomitant]
  7. BACTRIM [Concomitant]
  8. ACYCLOVIR [Concomitant]
  9. TYLENOL [Concomitant]
  10. BENADRYL ^WARNER-LAMBERT^/USA/(DIPHENHYDRAMINE HYDROCHLORIDE) [Concomitant]
  11. ANZEMET (DOLASETRON MESILATE) [Concomitant]
  12. SOLU-CORTEF [Concomitant]
  13. PHENERGAN ^AVENTIS PHARMA^ (PROMETHAZINE HYDROCHLORIDE) [Concomitant]
  14. DEMEROL [Concomitant]
  15. PEPCID [Concomitant]

REACTIONS (2)
  - BIOPSY BONE MARROW ABNORMAL [None]
  - BLOOD LACTATE DEHYDROGENASE INCREASED [None]
